FAERS Safety Report 6600266-3 (Version None)
Quarter: 2010Q1

REPORT INFORMATION
  Report Type: 
  Country: None (occurrence: None)
  Receive Date: 20100217
  Receipt Date: 20100125
  Transmission Date: 20100710
  Serious: Yes (Hospitalization, Other)
  Sender: FDA-Public Use
  Company Number: AUR-APL-2010-00355

PATIENT
  Age: 50 Year
  Sex: Female

DRUGS (3)
  1. ONDANSETRON [Suspect]
     Dosage: ORAL
     Route: 048
     Dates: start: 20081009, end: 20081022
  2. AXITINIB; PLACEBO [Suspect]
     Indication: PANCREATIC CARCINOMA
     Dosage: 5 MG BID ORAL
     Route: 048
     Dates: start: 20080904, end: 20081022
  3. GEMCITABINE [Suspect]
     Indication: PANCREATIC CARCINOMA
     Dosage: 1000MG/M2 EVERY 3W/4 IV
     Route: 042
     Dates: start: 20080904, end: 20081016

REACTIONS (2)
  - CONSTIPATION [None]
  - ILEAL PERFORATION [None]
